FAERS Safety Report 5310068-6 (Version None)
Quarter: 2007Q2

REPORT INFORMATION
  Report Type: 
  Country: None (occurrence: None)
  Receive Date: 20070427
  Receipt Date: 20070419
  Transmission Date: 20071010
  Serious: Yes (Congenital Anomaly)
  Sender: FDA-Public Use
  Company Number: GB-GLAXOSMITHKLINE-B0468152A

PATIENT
  Sex: Male

DRUGS (2)
  1. AMOXICILLIN [Suspect]
     Dosage: 500MG THREE TIMES PER DAY
     Dates: start: 20060505, end: 20060512
  2. LEVOTHYROXINE SODIUM [Concomitant]
     Dates: start: 20040101

REACTIONS (1)
  - RENAL DISORDER [None]
